FAERS Safety Report 4548062-5 (Version None)
Quarter: 2004Q4

REPORT INFORMATION
  Report Type: 
  Country: None (occurrence: None)
  Receive Date: 20041220
  Receipt Date: 20040401
  Transmission Date: 20050328
  Serious: Yes (Hospitalization, Other)
  Sender: FDA-Public Use
  Company Number: USA040463846

PATIENT
  Age: 51 Year
  Sex: Female
  Weight: 57 kg

DRUGS (3)
  1. HUMULIN 70/30 [Suspect]
     Dates: end: 19950101
  2. REGULAR ILETIN II (PORK) [Suspect]
     Dates: start: 19950101
  3. ILETIN-PORK NPH INSULIN(INSULIN, ANIMAL) [Suspect]
     Dates: start: 19950101

REACTIONS (3)
  - BLOOD GLUCOSE DECREASED [None]
  - BLOOD GLUCOSE INCREASED [None]
  - FEELING ABNORMAL [None]
